FAERS Safety Report 9902858 (Version 1)
Quarter: 2014Q1

REPORT INFORMATION
  Report Type: Spontaneous
  Country: FR (occurrence: FR)
  Receive Date: 20140217
  Receipt Date: 20140217
  Transmission Date: 20141002
  Serious: Yes (Death, Hospitalization)
  Sender: FDA-Public Use
  Company Number: PHHY2014FR017184

PATIENT
  Age: 59 Year
  Sex: Male

DRUGS (2)
  1. 5-FLUOROURACIL [Suspect]
     Indication: OROPHARYNGEAL CANCER
     Dosage: 1800 MG, UNK
     Route: 042
  2. CISPLATIN [Suspect]
     Indication: OROPHARYNGEAL CANCER
     Dosage: 45 MG, UNK
     Route: 042

REACTIONS (8)
  - Pupil fixed [Fatal]
  - Cerebral infarction [Fatal]
  - Muscular weakness [Fatal]
  - Speech disorder [Fatal]
  - Hemiplegia [Fatal]
  - Aphasia [Fatal]
  - Somnolence [Fatal]
  - Coma [Fatal]
